FAERS Safety Report 12669463 (Version 3)
Quarter: 2016Q4

REPORT INFORMATION
  Report Type: Spontaneous
  Country: US (occurrence: US)
  Receive Date: 20160819
  Receipt Date: 20161006
  Transmission Date: 20170207
  Serious: Yes (Other)
  Sender: FDA-Public Use
  Company Number: US-TEVA-684994ACC

PATIENT
  Age: 26 Year
  Sex: Female
  Weight: 67.65 kg

DRUGS (3)
  1. PARAGARD T 380A [Suspect]
     Active Substance: COPPER
     Indication: CONTRACEPTION
     Dates: start: 20160616, end: 20160721
  2. CLOBETASOL [Concomitant]
     Active Substance: CLOBETASOL
  3. EXCEDRIN [Concomitant]
     Active Substance: ACETAMINOPHEN\ASPIRIN\CAFFEINE
     Indication: MIGRAINE

REACTIONS (3)
  - Complication associated with device [Recovered/Resolved]
  - Device dislocation [Recovered/Resolved]
  - Embedded device [Recovered/Resolved]

NARRATIVE: CASE EVENT DATE: 20160616
